FAERS Safety Report 19094735 (Version 1)
Quarter: 2021Q2

REPORT INFORMATION
  Report Type: Spontaneous
  Country: JP (occurrence: JP)
  Receive Date: 20210405
  Receipt Date: 20210405
  Transmission Date: 20210717
  Serious: Yes (Other)
  Sender: FDA-Public Use
  Company Number: JP-VALIDUS PHARMACEUTICALS LLC-JP-2021VAL000635

PATIENT
  Age: 36 Year
  Sex: Female

DRUGS (6)
  1. DIGOXIN. [Suspect]
     Active Substance: DIGOXIN
     Dosage: 0.5 MG, QD
     Route: 065
  2. DIGOXIN. [Suspect]
     Active Substance: DIGOXIN
     Dosage: 1 MG, QD
     Route: 065
  3. DIGOXIN. [Suspect]
     Active Substance: DIGOXIN
     Dosage: 0.75 MG, QD
     Route: 065
  4. DIGOXIN. [Suspect]
     Active Substance: DIGOXIN
     Dosage: 1 MG, QD
     Route: 065
  5. LASIX [Suspect]
     Active Substance: FUROSEMIDE
     Indication: OLIGURIA
     Dosage: STARTED ON 16TH HOSPITAL DAY
     Route: 058
  6. DIGOXIN. [Suspect]
     Active Substance: DIGOXIN
     Indication: FOETAL TACHYARRHYTHMIA
     Dosage: 1 MG, QD
     Route: 065

REACTIONS (7)
  - Blood potassium decreased [Unknown]
  - Gestational hypertension [Unknown]
  - Premature delivery [Unknown]
  - HELLP syndrome [Unknown]
  - Drug interaction [Unknown]
  - Pleural effusion [Recovered/Resolved]
  - Exposure during pregnancy [Unknown]
